FAERS Safety Report 11520962 (Version 2)
Quarter: 2015Q3

REPORT INFORMATION
  Report Type: Spontaneous
  Country: IT (occurrence: IT)
  Receive Date: 20150918
  Receipt Date: 20150918
  Transmission Date: 20151125
  Serious: Yes (Death, Hospitalization, Other)
  Sender: FDA-Public Use
  Company Number: IT-ACTAVIS-2015-19923

PATIENT
  Age: 43 Year
  Sex: Female

DRUGS (6)
  1. DOXORUBICIN (UNKNOWN) [Suspect]
     Active Substance: DOXORUBICIN
     Indication: BURKITT^S LYMPHOMA STAGE IV
     Dosage: UNK,29 CYCLES
     Route: 065
  2. CYCLOPHOSPHAMIDE (UNKNOWN) [Suspect]
     Active Substance: CYCLOPHOSPHAMIDE
     Indication: BURKITT^S LYMPHOMA STAGE IV
     Dosage: 200 MG/M2, QHS
     Route: 065
  3. VINCRISTINE (UNKNOWN) [Suspect]
     Active Substance: VINCRISTINE
     Indication: BURKITT^S LYMPHOMA STAGE IV
     Dosage: UNK, 29 CYCLES
     Route: 065
  4. PREDNISONE (UNKNOWN) [Suspect]
     Active Substance: PREDNISONE
     Indication: BURKITT^S LYMPHOMA STAGE IV
     Dosage: UNK,29 CYLES
     Route: 065
  5. RITUXIMAB [Suspect]
     Active Substance: RITUXIMAB
     Indication: BURKITT^S LYMPHOMA STAGE IV
     Dosage: UNK,28 CYCLES
     Route: 065
  6. CYCLOPHOSPHAMIDE (UNKNOWN) [Suspect]
     Active Substance: CYCLOPHOSPHAMIDE
     Dosage: UNK,29 CYCLES
     Route: 065

REACTIONS (4)
  - Disease progression [Fatal]
  - Intestinal perforation [Unknown]
  - Drug resistance [Unknown]
  - Tumour lysis syndrome [Unknown]
